FAERS Safety Report 7734424-1 (Version None)
Quarter: 2011Q3

REPORT INFORMATION
  Report Type: 
  Country: None (occurrence: None)
  Receive Date: 20110901
  Receipt Date: 20110823
  Transmission Date: 20111222
  Serious: Yes (Hospitalization)
  Sender: FDA-Public Use
  Company Number: 1000023100

PATIENT
  Age: 55 Year
  Sex: Female
  Weight: 52 kg

DRUGS (2)
  1. CITALOPRAM HYDROBROMIDE [Suspect]
     Dates: start: 20070209, end: 20070201
  2. SKENAN (MORPHINE SULFATE) (MORHPINE SULFATE) [Concomitant]

REACTIONS (1)
  - NEUTROPENIA [None]
